FAERS Safety Report 5014272-6 (Version None)
Quarter: 2006Q2

REPORT INFORMATION
  Report Type: 
  Country: None (occurrence: None)
  Receive Date: 20060414
  Receipt Date: 20060213
  Transmission Date: 20061013
  Serious: No
  Sender: FDA-Public Use
  Company Number: 2006SP000757

PATIENT
  Age: 59 Year
  Sex: Female
  Weight: 77.1115 kg

DRUGS (7)
  1. LUNESTA [Suspect]
     Indication: INSOMNIA
     Dosage: 3 MG;HS;ORAL
     Route: 048
     Dates: start: 20050901, end: 20051001
  2. AMBIEN [Concomitant]
  3. PREMPRO [Concomitant]
  4. STELAZINE [Concomitant]
  5. CELEXA [Concomitant]
  6. ZETIA [Concomitant]
  7. KLONOPIN [Concomitant]

REACTIONS (1)
  - INITIAL INSOMNIA [None]
